FAERS Safety Report 4524839-7 (Version None)
Quarter: 2004Q4

REPORT INFORMATION
  Report Type: 
  Country: None (occurrence: None)
  Receive Date: 20041210
  Receipt Date: 20041210
  Transmission Date: 20050328
  Serious: Yes (Hospitalization)
  Sender: FDA-Public Use
  Company Number: None

PATIENT
  Age: 74 Year
  Sex: Male
  Weight: 62.5964 kg

DRUGS (14)
  1. GEMCITABINE [Suspect]
     Indication: PANCREATIC CARCINOMA
     Dosage: 1500 MG/M2 IV; 150 MG (Q 3 WEEKS)
     Route: 042
     Dates: start: 20041018
  2. GEMCITABINE [Suspect]
     Indication: PANCREATIC CARCINOMA
     Dosage: 1500 MG/M2 IV; 150 MG (Q 3 WEEKS)
     Route: 042
     Dates: start: 20041101
  3. GEMCITABINE [Suspect]
     Indication: PANCREATIC CARCINOMA
     Dosage: 1500 MG/M2 IV; 150 MG (Q 3 WEEKS)
     Route: 042
     Dates: start: 20041115
  4. GEMCITABINE [Suspect]
     Indication: PANCREATIC CARCINOMA
     Dosage: 1500 MG/M2 IV; 150 MG (Q 3 WEEKS)
     Route: 042
     Dates: start: 20041129
  5. LOVENOX [Concomitant]
  6. DURAGESIC [Concomitant]
  7. METOCLOPRAMIDE [Concomitant]
  8. PROTONIX [Concomitant]
  9. LIPRAM [Concomitant]
  10. TRICOR [Concomitant]
  11. AVAPRO [Concomitant]
  12. MEGACE [Concomitant]
  13. LASIX [Concomitant]
  14. SPIROLACTONE [Concomitant]

REACTIONS (1)
  - PULMONARY EMBOLISM [None]
